FAERS Safety Report 8882103 (Version 1)
Quarter: 2012Q4

REPORT INFORMATION
  Report Type: 
  Country: US (occurrence: US)
  Receive Date: 20121102
  Receipt Date: 20121102
  Transmission Date: 20130627
  Serious: No
  Sender: FDA-Public Use
  Company Number: US-MYLANLABS-2012S1020499

PATIENT
  Age: 58 Year
  Sex: Female

DRUGS (5)
  1. FLUVASTATIN [Suspect]
     Indication: BLOOD CHOLESTEROL INCREASED
     Route: 048
     Dates: start: 20120922
  2. ATENOLOL [Concomitant]
     Indication: BLOOD PRESSURE INCREASED
  3. PROTONIX [Concomitant]
     Indication: HYPERCHLORHYDRIA
  4. BABY ASPIRIN [Concomitant]
  5. VITAMIN B12 [Concomitant]
     Dosage: Injection

REACTIONS (6)
  - Vein pain [Not Recovered/Not Resolved]
  - Bone pain [Not Recovered/Not Resolved]
  - Musculoskeletal pain [Not Recovered/Not Resolved]
  - Insomnia [Not Recovered/Not Resolved]
  - Fatigue [Not Recovered/Not Resolved]
  - Pyrexia [Not Recovered/Not Resolved]
